APPROVED DRUG PRODUCT: PROMETHAZINE HYDROCHLORIDE
Active Ingredient: PROMETHAZINE HYDROCHLORIDE
Strength: 6.25MG/5ML
Dosage Form/Route: SYRUP;ORAL
Application: A091675 | Product #001 | TE Code: AA
Applicant: COSETTE PHARMACEUTICALS INC
Approved: Jun 28, 2012 | RLD: No | RS: No | Type: RX